FAERS Safety Report 16074953 (Version 3)
Quarter: 2019Q3

REPORT INFORMATION
  Report Type: Spontaneous
  Country: US (occurrence: US)
  Receive Date: 20190315
  Receipt Date: 20190814
  Transmission Date: 20191004
  Serious: Yes (Other)
  Sender: FDA-Public Use
  Company Number: US-ASTRAZENECA-2019SE27856

PATIENT
  Sex: Female
  Weight: 68.9 kg

DRUGS (6)
  1. SYMBICORT [Suspect]
     Active Substance: BUDESONIDE\FORMOTEROL FUMARATE DIHYDRATE
     Indication: CHRONIC OBSTRUCTIVE PULMONARY DISEASE
     Dosage: 80/4.5 MCG 1 PUFF TWICE A DAY
     Route: 055
     Dates: start: 201311
  2. SYMBICORT [Suspect]
     Active Substance: BUDESONIDE\FORMOTEROL FUMARATE DIHYDRATE
     Indication: LUNG VOLUME REDUCTION SURGERY
     Dosage: SYMBICORT 1 PUFF ONCE A DAY
     Route: 055
  3. SYMBICORT [Suspect]
     Active Substance: BUDESONIDE\FORMOTEROL FUMARATE DIHYDRATE
     Indication: CHRONIC OBSTRUCTIVE PULMONARY DISEASE
     Dosage: SYMBICORT 1 PUFF ONCE A DAY
     Route: 055
  4. SYMBICORT [Suspect]
     Active Substance: BUDESONIDE\FORMOTEROL FUMARATE DIHYDRATE
     Indication: LUNG VOLUME REDUCTION SURGERY
     Dosage: 2 PUFFS, TWICE DAILY
     Route: 055
     Dates: start: 20140620
  5. SYMBICORT [Suspect]
     Active Substance: BUDESONIDE\FORMOTEROL FUMARATE DIHYDRATE
     Indication: CHRONIC OBSTRUCTIVE PULMONARY DISEASE
     Dosage: 2 PUFFS, TWICE DAILY
     Route: 055
     Dates: start: 20140620
  6. SYMBICORT [Suspect]
     Active Substance: BUDESONIDE\FORMOTEROL FUMARATE DIHYDRATE
     Indication: LUNG VOLUME REDUCTION SURGERY
     Dosage: 80/4.5 MCG 1 PUFF TWICE A DAY
     Route: 055
     Dates: start: 201311

REACTIONS (11)
  - Nasal congestion [Unknown]
  - Vision blurred [Unknown]
  - Drug ineffective [Unknown]
  - Mucosal inflammation [Unknown]
  - Chronic obstructive pulmonary disease [Unknown]
  - Rhinorrhoea [Unknown]
  - Lacrimation increased [Unknown]
  - Product use in unapproved indication [Unknown]
  - Sinusitis [Unknown]
  - Chest pain [Unknown]
  - Off label use [Unknown]
